FAERS Safety Report 15539845 (Version 1)
Quarter: 2018Q4

REPORT INFORMATION
  Report Type: Spontaneous
  Country: NP (occurrence: NP)
  Receive Date: 20181023
  Receipt Date: 20181023
  Transmission Date: 20190205
  Serious: Yes (Hospitalization, Other)
  Sender: FDA-Public Use
  Company Number: NP-BAUSCH-BL-2018-028912

PATIENT
  Age: 45 Year
  Sex: Male

DRUGS (5)
  1. BUSCOPAN [Concomitant]
     Active Substance: BUTYLSCOPOLAMINE BROMIDE
     Indication: HYPOBARISM
  2. IBUPROFEN. [Suspect]
     Active Substance: IBUPROFEN
     Indication: HYPOBARISM
     Route: 065
  3. PREDNISOLONE. [Suspect]
     Active Substance: PREDNISOLONE
     Indication: HYPOBARISM
     Route: 065
  4. SILDENAFIL. [Concomitant]
     Active Substance: SILDENAFIL
     Indication: HYPOBARISM
  5. ACETAZOLAMIDE. [Concomitant]
     Active Substance: ACETAZOLAMIDE
     Indication: HYPOBARISM

REACTIONS (2)
  - Helicobacter infection [Recovered/Resolved]
  - Duodenal ulcer perforation [Recovered/Resolved]
